FAERS Safety Report 10568119 (Version 1)
Quarter: 2014Q4

REPORT INFORMATION
  Report Type: Spontaneous
  Country: FR (occurrence: None)
  Receive Date: 20141104
  Receipt Date: 20141104
  Transmission Date: 20150529
  Serious: Yes (Hospitalization)
  Sender: FDA-Public Use
  Company Number: B10000655A

PATIENT
  Age: 69 Year
  Sex: Female

DRUGS (11)
  1. PRAVASTATIN [Suspect]
     Active Substance: PRAVASTATIN\PRAVASTATIN SODIUM
     Indication: PRODUCT USED FOR UNKNOWN INDICATION
     Route: 048
  2. VERATRAN (CLOTIAZEPAM) [Concomitant]
  3. DEROXAT [Suspect]
     Active Substance: PAROXETINE HYDROCHLORIDE
     Indication: PRODUCT USED FOR UNKNOWN INDICATION
     Route: 048
  4. MIANSERINE [Suspect]
     Active Substance: MIANSERIN HYDROCHLORIDE
     Indication: DEPRESSION
     Route: 048
     Dates: end: 20140624
  5. TEMESTA (LORAZEPAM) [Concomitant]
     Active Substance: LORAZEPAM
  6. IMOVANE [Concomitant]
     Active Substance: ZOPICLONE
  7. LEVOTHYROX (LEVOTHYROXINE SODIUM) [Concomitant]
     Active Substance: LEVOTHYROXINE SODIUM
  8. PROPRANOLOL [Suspect]
     Active Substance: PROPRANOLOL\PROPRANOLOL HYDROCHLORIDE
     Indication: PRODUCT USED FOR UNKNOWN INDICATION
     Route: 048
  9. DEROXAT [Suspect]
     Active Substance: PAROXETINE HYDROCHLORIDE
     Indication: PRODUCT USED FOR UNKNOWN INDICATION
     Route: 048
  10. CORTANCYL [Suspect]
     Active Substance: PREDNISONE
     Indication: PRODUCT USED FOR UNKNOWN INDICATION
     Dates: start: 20140403
  11. IXEL [Suspect]
     Active Substance: MILNACIPRAN HYDROCHLORIDE
     Indication: ILL-DEFINED DISORDER
     Route: 048

REACTIONS (12)
  - Chest pain [None]
  - Cough [None]
  - Pyrexia [None]
  - Alveolitis [None]
  - Hypoventilation [None]
  - Dyspnoea [None]
  - Eosinophil count increased [None]
  - Neutrophil count increased [None]
  - Interstitial lung disease [None]
  - General physical health deterioration [None]
  - Hypoxia [None]
  - Rales [None]

NARRATIVE: CASE EVENT DATE: 201401
